FAERS Safety Report 11520496 (Version 2)
Quarter: 2016Q1

REPORT INFORMATION
  Report Type: Spontaneous
  Country: IT (occurrence: IT)
  Receive Date: 20150918
  Receipt Date: 20160201
  Transmission Date: 20160525
  Serious: Yes (Hospitalization)
  Sender: FDA-Public Use
  Company Number: IT-BRISTOL-MYERS SQUIBB COMPANY-BMS-2015-061321

PATIENT
  Age: 30 Year
  Sex: Male

DRUGS (6)
  1. ABILIFY [Suspect]
     Active Substance: ARIPIPRAZOLE
     Indication: SCHIZOTYPAL PERSONALITY DISORDER
     Dosage: 5 MG, UNK
     Route: 048
     Dates: start: 20150101
  2. ABILIFY [Suspect]
     Active Substance: ARIPIPRAZOLE
     Dosage: 50 MG, TOTAL
     Route: 048
     Dates: start: 20150830
  3. DEPAKIN [Suspect]
     Active Substance: VALPROATE SODIUM
     Indication: OBSESSIVE-COMPULSIVE DISORDER
     Dosage: 500 MG, UNK
     Route: 048
     Dates: start: 20140101
  4. SERTRALINE [Suspect]
     Active Substance: SERTRALINE HYDROCHLORIDE
     Indication: DEPRESSION
     Dosage: 75 MG, UNK
     Route: 048
     Dates: start: 20150101
  5. SERTRALINE [Suspect]
     Active Substance: SERTRALINE HYDROCHLORIDE
     Dosage: 900 MG, TOTAL
     Route: 048
     Dates: start: 20150830
  6. DEPAKIN [Suspect]
     Active Substance: VALPROATE SODIUM
     Dosage: 7.5 G, TOTAL
     Route: 048
     Dates: start: 20150830

REACTIONS (5)
  - Overdose [Unknown]
  - Vomiting [Recovered/Resolved]
  - Psychomotor retardation [Recovered/Resolved]
  - Off label use [Unknown]
  - Nausea [Recovered/Resolved]

NARRATIVE: CASE EVENT DATE: 20150830
